FAERS Safety Report 21061706 (Version 1)
Quarter: 2022Q3

REPORT INFORMATION
  Report Type: Spontaneous
  Country: PL (occurrence: PL)
  Receive Date: 20220709
  Receipt Date: 20220709
  Transmission Date: 20221027
  Serious: Yes (Other)
  Sender: FDA-Public Use
  Company Number: PL-TEVA-2022-PL-2052938

PATIENT
  Age: 64 Year
  Sex: Male

DRUGS (9)
  1. OMEPRAZOLE [Interacting]
     Active Substance: OMEPRAZOLE
     Indication: Prophylaxis
     Dosage: 40 MILLIGRAM DAILY;
  2. WARFARIN [Interacting]
     Active Substance: WARFARIN
     Indication: Atrial fibrillation
     Dosage: AT A DOSE ADJUSTED TO THE INTERNATIONAL NORMALIZED RATIO (INR) OF PROTHROMBIN TIME
     Route: 065
  3. METOPROLOL [Concomitant]
     Active Substance: METOPROLOL
     Indication: Atrial fibrillation
     Dosage: 100 MILLIGRAM DAILY;
     Route: 065
  4. LORNOXICAM [Concomitant]
     Active Substance: LORNOXICAM
     Indication: Osteoarthritis
     Dosage: 8 MILLIGRAM DAILY;
     Route: 065
  5. LORNOXICAM [Concomitant]
     Active Substance: LORNOXICAM
     Indication: Benign prostatic hyperplasia
  6. CHONDROITIN SULFATE (BOVINE) [Concomitant]
     Active Substance: CHONDROITIN SULFATE (BOVINE)
     Indication: Osteoarthritis
     Dosage: 1500 MILLIGRAM DAILY;
     Route: 065
  7. CHONDROITIN SULFATE (BOVINE) [Concomitant]
     Active Substance: CHONDROITIN SULFATE (BOVINE)
     Indication: Benign prostatic hyperplasia
  8. TAMSULOSIN [Concomitant]
     Active Substance: TAMSULOSIN
     Indication: Benign prostatic hyperplasia
     Dosage: .4 MILLIGRAM DAILY; CONTROLLEDRELEASE
     Route: 048
  9. PROPAFENONE [Concomitant]
     Active Substance: PROPAFENONE
     Indication: Atrial fibrillation
     Dosage: 300 MILLIGRAM DAILY;
     Route: 065

REACTIONS (3)
  - Upper gastrointestinal haemorrhage [Unknown]
  - Haematuria [Unknown]
  - Drug interaction [Unknown]
